FAERS Safety Report 9915923 (Version 2)
Quarter: 2014Q1

REPORT INFORMATION
  Report Type: Spontaneous
  Country: US (occurrence: None)
  Receive Date: 20140219
  Receipt Date: 20140306
  Transmission Date: 20141002
  Serious: Yes (Life-Threatening, Other)
  Sender: FDA-Public Use
  Company Number: 2014EXPUS00037

PATIENT
  Sex: Female

DRUGS (2)
  1. EXPAREL [Suspect]
     Indication: POSTOPERATIVE ANALGESIA
     Route: 058
  2. NEOSTIGMINE [Suspect]
     Indication: PRODUCT USED FOR UNKNOWN INDICATION

REACTIONS (2)
  - Bradycardia [None]
  - Cardio-respiratory arrest [None]
